FAERS Safety Report 8150452-9 (Version None)
Quarter: 2012Q1

REPORT INFORMATION
  Report Type: 
  Country: None (occurrence: None)
  Receive Date: 20120220
  Receipt Date: 20111221
  Transmission Date: 20120608
  Serious: Yes (Hospitalization)
  Sender: FDA-Public Use
  Company Number: IT-PURDUE-GBR-2011-0009183

PATIENT
  Sex: Male

DRUGS (3)
  1. LYRICA [Suspect]
     Indication: DRUG ADMINISTRATION ERROR
     Dosage: 75 MG, SINGLE
     Route: 048
     Dates: start: 20111106, end: 20111106
  2. MADOPAR [Concomitant]
     Indication: PRODUCT USED FOR UNKNOWN INDICATION
     Dosage: UNK UNK, DAILY
     Route: 065
  3. OXYCONTIN [Suspect]
     Indication: DRUG ADMINISTRATION ERROR
     Dosage: 1 DF, SINGLE
     Route: 048
     Dates: start: 20111106, end: 20111106

REACTIONS (4)
  - ANURIA [None]
  - PLEURISY [None]
  - DRUG ADMINISTRATION ERROR [None]
  - SOPOR [None]
